FAERS Safety Report 11878765 (Version 3)
Quarter: 2016Q1

REPORT INFORMATION
  Report Type: Spontaneous
  Country: IL (occurrence: IL)
  Receive Date: 20151230
  Receipt Date: 20160204
  Transmission Date: 20160526
  Serious: Yes (Hospitalization)
  Sender: FDA-Public Use
  Company Number: IL-JNJFOC-20151017568

PATIENT
  Age: 48 Year
  Sex: Female
  Weight: 79 kg

DRUGS (7)
  1. IRON [Concomitant]
     Active Substance: IRON
     Route: 065
  2. METHOTREXATE [Concomitant]
     Active Substance: METHOTREXATE
     Route: 065
  3. SIMPONI [Suspect]
     Active Substance: GOLIMUMAB
     Indication: RHEUMATOID ARTHRITIS
     Route: 058
     Dates: start: 201601
  4. VICTOZA [Concomitant]
     Active Substance: LIRAGLUTIDE
     Route: 065
  5. LOSEC [Concomitant]
     Active Substance: OMEPRAZOLE
     Route: 065
  6. SIMPONI [Suspect]
     Active Substance: GOLIMUMAB
     Indication: RHEUMATOID ARTHRITIS
     Route: 058
  7. SIMPONI [Suspect]
     Active Substance: GOLIMUMAB
     Indication: RHEUMATOID ARTHRITIS
     Route: 058
     Dates: start: 20150802

REACTIONS (9)
  - Joint swelling [Unknown]
  - Uterine mass [Unknown]
  - Therapeutic response decreased [Recovering/Resolving]
  - Arthralgia [Not Recovered/Not Resolved]
  - Inappropriate schedule of drug administration [Unknown]
  - Peripheral swelling [Not Recovered/Not Resolved]
  - Off label use [Unknown]
  - Weight decreased [Unknown]
  - Anaemia [Unknown]

NARRATIVE: CASE EVENT DATE: 201601
